FAERS Safety Report 9246123 (Version 1)
Quarter: 2013Q2

REPORT INFORMATION
  Report Type: Report from Study
  Country: US (occurrence: US)
  Receive Date: 20130422
  Receipt Date: 20130422
  Transmission Date: 20140414
  Serious: Yes (Hospitalization)
  Sender: FDA-Public Use
  Company Number: US-ACTELION-A-US2011-45884

PATIENT
  Age: 52 Year
  Sex: Female

DRUGS (3)
  1. VENTAVIS [Suspect]
     Indication: PULMONARY ARTERIAL HYPERTENSION
     Dosage: UNK
     Route: 055
  2. VENTAVIS [Suspect]
     Dosage: UNK
     Route: 055
  3. COUMADIN [Concomitant]

REACTIONS (9)
  - Bronchitis [Unknown]
  - Haemoptysis [Unknown]
  - Salivary hypersecretion [Unknown]
  - Weight decreased [Unknown]
  - Dizziness [Unknown]
  - Cough [Unknown]
  - Bronchitis chronic [Unknown]
  - Bronchitis [Unknown]
  - Local swelling [Unknown]
